FAERS Safety Report 8215099-4 (Version None)
Quarter: 2012Q1

REPORT INFORMATION
  Report Type: 
  Country: None (occurrence: None)
  Receive Date: 20120316
  Receipt Date: 20120308
  Transmission Date: 20120608
  Serious: Yes (Other)
  Sender: FDA-Public Use
  Company Number: PHHY2011DK30787

PATIENT
  Sex: Male

DRUGS (5)
  1. OXALIPLATIN [Suspect]
     Indication: COLON CANCER METASTATIC
     Dosage: 85 MG / SQUARE METER EQUALING 155 MG X 10
     Dates: start: 20081128, end: 20090501
  2. LEUCOVORIN CALCIUM [Suspect]
     Indication: COLON CANCER METASTATIC
     Dosage: 200 MG / SQUARE METER EQUALING 360 MG X 10
     Dates: start: 20081128, end: 20090501
  3. OXALIPLATIN [Suspect]
     Dates: start: 20081128, end: 20090406
  4. FLUOROURACIL [Suspect]
     Dosage: 2400 MG / SQUARE METER EQUALING 4325 MG / SQUARE METER X 10
  5. FLUOROURACIL [Suspect]
     Indication: COLON CANCER METASTATIC
     Dosage: BOLUS OF 400 MG / SQUARE METER EQUALING 725 MG X 10
     Dates: start: 20081128, end: 20090501

REACTIONS (4)
  - PERIPHERAL SENSORY NEUROPATHY [None]
  - FINE MOTOR DELAY [None]
  - THROMBOCYTOPENIA [None]
  - PARAESTHESIA [None]
